FAERS Safety Report 17657734 (Version 2)
Quarter: 2020Q3

REPORT INFORMATION
  Report Type: Spontaneous
  Country: US (occurrence: US)
  Receive Date: 20200411
  Receipt Date: 20200708
  Transmission Date: 20201102
  Serious: Yes (Hospitalization, Other)
  Sender: FDA-Public Use
  Company Number: US-BRISTOL-MYERS SQUIBB COMPANY-BMS-2020-028705

PATIENT
  Age: 58 Year
  Sex: Male
  Weight: 69.4 kg

DRUGS (2)
  1. OPDIVO [Suspect]
     Active Substance: NIVOLUMAB
     Indication: MALIGNANT MELANOMA
     Dosage: UNK UNK, Q2WK
     Route: 065
     Dates: start: 2016, end: 201903
  2. OPDIVO [Suspect]
     Active Substance: NIVOLUMAB
     Dosage: UNK, Q4WK
     Route: 065
     Dates: end: 201903

REACTIONS (7)
  - Adrenal disorder [Unknown]
  - Clostridium difficile infection [Unknown]
  - Adrenal insufficiency [Unknown]
  - Lymphadenopathy [Unknown]
  - Malaise [Unknown]
  - Gastric cancer [Unknown]
  - Chest pain [Unknown]

NARRATIVE: CASE EVENT DATE: 202001
